FAERS Safety Report 9708057 (Version 1)
Quarter: 2013Q4

REPORT INFORMATION
  Report Type: Spontaneous
  Country: US (occurrence: None)
  Receive Date: 20131122
  Receipt Date: 20131122
  Transmission Date: 20140711
  Serious: Yes (Disabling)
  Sender: FDA-Public Use
  Company Number: None

PATIENT
  Age: 65 Year
  Sex: Male
  Weight: 83.92 kg

DRUGS (2)
  1. CLONAZEPAM [Suspect]
     Indication: SLEEP DISORDER
     Route: 048
     Dates: start: 20130828, end: 20131114
  2. FLURAZEPAM [Suspect]
     Indication: SLEEP DISORDER
     Route: 048

REACTIONS (2)
  - Sleep apnoea syndrome [None]
  - Metabolic acidosis [None]
